FAERS Safety Report 5068797-8 (Version None)
Quarter: 2006Q3

REPORT INFORMATION
  Report Type: 
  Country: None (occurrence: None)
  Receive Date: 20060802
  Receipt Date: 20060406
  Transmission Date: 20061208
  Serious: Yes (Hospitalization)
  Sender: FDA-Public Use
  Company Number: US-BRISTOL-MYERS SQUIBB COMPANY-13339288

PATIENT
  Age: 91 Year
  Sex: Male
  Weight: 73 kg

DRUGS (1)
  1. COUMADIN [Suspect]
     Indication: CARDIAC PACEMAKER INSERTION

REACTIONS (1)
  - SUBDURAL HAEMATOMA [None]
